FAERS Safety Report 5715316-6 (Version None)
Quarter: 2008Q2

REPORT INFORMATION
  Report Type: 
  Country: None (occurrence: None)
  Receive Date: 20080423
  Receipt Date: 20080411
  Transmission Date: 20081010
  Serious: Yes (Other)
  Sender: FDA-Public Use
  Company Number: GB-PFIZER INC-2008032733

PATIENT
  Age: 72 Year
  Sex: Female
  Weight: 72 kg

DRUGS (12)
  1. CHAMPIX [Suspect]
     Indication: SMOKING CESSATION THERAPY
     Route: 048
     Dates: start: 20080212, end: 20080325
  2. ACETYLSALICYLIC ACID SRT [Concomitant]
     Dosage: DAILY DOSE:300MG
  3. ATORVASTATIN CALCIUM [Concomitant]
  4. ACETAMINOPHEN W/ CODEINE [Concomitant]
  5. FLUOXETINE HYDROCHLORIDE [Concomitant]
  6. FUROSEMIDE [Concomitant]
  7. GLYCERYL TRINITRATE [Concomitant]
  8. IPRATROPIUM BROMIDE [Concomitant]
  9. OMEPRAZOLE [Concomitant]
  10. PERINDOPRIL ERBUMINE [Concomitant]
     Dosage: DAILY DOSE:8MG
  11. ALBUTEROL [Concomitant]
  12. SERETIDE [Concomitant]

REACTIONS (5)
  - AGITATION [None]
  - ANXIETY [None]
  - INSOMNIA [None]
  - SELF-INJURIOUS IDEATION [None]
  - WITHDRAWAL SYNDROME [None]
